FAERS Safety Report 4523167-3 (Version None)
Quarter: 2004Q4

REPORT INFORMATION
  Report Type: 
  Country: None (occurrence: None)
  Receive Date: 20041210
  Receipt Date: 20041202
  Transmission Date: 20050328
  Serious: Yes (Other)
  Sender: FDA-Public Use
  Company Number: US-JNJFOC-20041200828

PATIENT

DRUGS (10)
  1. TOPAMAX [Suspect]
     Indication: DRUG USE FOR UNKNOWN INDICATION
     Route: 064
  2. PRENATAL VITAMINS [Concomitant]
     Route: 064
     Dates: start: 20040208, end: 20041023
  3. PRENATAL VITAMINS [Concomitant]
     Route: 064
     Dates: start: 20040208, end: 20041023
  4. PRENATAL VITAMINS [Concomitant]
     Route: 064
     Dates: start: 20040208, end: 20041023
  5. PRENATAL VITAMINS [Concomitant]
     Route: 064
     Dates: start: 20040208, end: 20041023
  6. PRENATAL VITAMINS [Concomitant]
     Route: 064
     Dates: start: 20040208, end: 20041023
  7. PRENATAL VITAMINS [Concomitant]
     Route: 064
     Dates: start: 20040208, end: 20041023
  8. PRENATAL VITAMINS [Concomitant]
     Route: 064
     Dates: start: 20040208, end: 20041023
  9. PRENATAL VITAMINS [Concomitant]
     Route: 064
     Dates: start: 20040208, end: 20041023
  10. FOLIC ACID [Concomitant]
     Route: 064
     Dates: start: 20040301, end: 20041023

REACTIONS (4)
  - DRUG EXPOSURE DURING PREGNANCY [None]
  - DRUG SCREEN POSITIVE [None]
  - TREMOR [None]
  - UNDERWEIGHT [None]
